FAERS Safety Report 6934447-6 (Version None)
Quarter: 2010Q3

REPORT INFORMATION
  Report Type: 
  Country: None (occurrence: None)
  Receive Date: 20100820
  Receipt Date: 20100810
  Transmission Date: 20110219
  Serious: Yes (Other)
  Sender: FDA-Public Use
  Company Number: US-ELI_LILLY_AND_COMPANY-US201008004318

PATIENT
  Sex: Male

DRUGS (5)
  1. CIALIS [Suspect]
     Indication: ERECTILE DYSFUNCTION
     Dosage: UNK, AS NEEDED
     Dates: start: 20090101
  2. LISINOPRIL [Concomitant]
  3. CELEXA [Concomitant]
  4. OMNICEF [Concomitant]
  5. BENICAR [Concomitant]

REACTIONS (1)
  - BLINDNESS UNILATERAL [None]
